FAERS Safety Report 4439274-X (Version None)
Quarter: 2004Q3

REPORT INFORMATION
  Report Type: 
  Country: None (occurrence: None)
  Receive Date: 20040831
  Receipt Date: 20040819
  Transmission Date: 20050211
  Serious: Yes (Death, Hospitalization)
  Sender: FDA-Public Use
  Company Number: 2004229253US

PATIENT
  Age: 68 Year
  Sex: Female

DRUGS (3)
  1. CAMPTOSAR [Suspect]
     Indication: COLORECTAL CANCER
     Dosage: 585 MG, CYCLIC, IV
     Route: 042
     Dates: start: 20040708, end: 20040729
  2. CETUXIMAB (CETUXIMAB) SOLUTION [Suspect]
     Indication: COLORECTAL CANCER
     Dosage: 1504 MG, CYCLIC, IV
     Route: 042
     Dates: start: 20040708, end: 20040805
  3. COUMADIN [Concomitant]

REACTIONS (21)
  - ACTIVATED PARTIAL THROMBOPLASTIN TIME PROLONGED [None]
  - ANAEMIA [None]
  - ASTHENIA [None]
  - BLOOD ALKALINE PHOSPHATASE INCREASED [None]
  - COLORECTAL CANCER [None]
  - DEEP VEIN THROMBOSIS [None]
  - DEHYDRATION [None]
  - DIARRHOEA [None]
  - FATIGUE [None]
  - HYPOCALCAEMIA [None]
  - HYPOKALAEMIA [None]
  - HYPOTENSION [None]
  - INTERNATIONAL NORMALISED RATIO INCREASED [None]
  - LETHARGY [None]
  - MALIGNANT NEOPLASM PROGRESSION [None]
  - MARKEDLY REDUCED DIETARY INTAKE [None]
  - METABOLIC ACIDOSIS [None]
  - NEUTROPENIA [None]
  - OEDEMA PERIPHERAL [None]
  - OXYGEN SATURATION DECREASED [None]
  - STOMATITIS [None]
